FAERS Safety Report 23673088 (Version 1)
Quarter: 2024Q1

REPORT INFORMATION
  Report Type: Spontaneous
  Country: ES (occurrence: ES)
  Receive Date: 20240326
  Receipt Date: 20240326
  Transmission Date: 20240410
  Serious: Yes (Hospitalization)
  Sender: FDA-Public Use
  Company Number: None

PATIENT
  Age: 52 Year
  Sex: Female

DRUGS (2)
  1. CAPECITABINE [Suspect]
     Active Substance: CAPECITABINE
     Indication: Adenocarcinoma of colon
     Dates: start: 20221107, end: 20221120
  2. ACETAMINOPHEN\BELLADONNA LEAF\CAFFEINE\ERGOTAMINE TARTRATE [Suspect]
     Active Substance: ACETAMINOPHEN\BELLADONNA LEAF\CAFFEINE\ERGOTAMINE TARTRATE
     Indication: Migraine
     Dates: start: 20221030, end: 20221120

REACTIONS (2)
  - Acute myocardial infarction [Recovered/Resolved with Sequelae]
  - Coronary artery dissection [Recovering/Resolving]

NARRATIVE: CASE EVENT DATE: 20221119
